FAERS Safety Report 9799628 (Version 2)
Quarter: 2015Q3

REPORT INFORMATION
  Report Type: Spontaneous
  Country: US (occurrence: US)
  Receive Date: 20140106
  Receipt Date: 20150806
  Transmission Date: 20151125
  Serious: Yes (Hospitalization)
  Sender: FDA-Public Use
  Company Number: US-GILEAD-2010-0031589

PATIENT
  Age: 67 Year
  Sex: Female
  Weight: 127.1 kg

DRUGS (19)
  1. AMLODIPINE [Concomitant]
     Active Substance: AMLODIPINE BESYLATE
  2. COLCHICINE. [Concomitant]
     Active Substance: COLCHICINE
  3. TEMAZEPAM. [Concomitant]
     Active Substance: TEMAZEPAM
  4. DARVOCET [Concomitant]
     Active Substance: ACETAMINOPHEN\PROPOXYPHENE HYDROCHLORIDE
  5. METHOCARBAMOL. [Concomitant]
     Active Substance: METHOCARBAMOL
  6. TORSEMIDE. [Concomitant]
     Active Substance: TORSEMIDE
  7. ALLOPURINOL. [Concomitant]
     Active Substance: ALLOPURINOL
  8. NOVOLOG [Concomitant]
     Active Substance: INSULIN ASPART
  9. GAS-X [Concomitant]
     Active Substance: DIMETHICONE
  10. LETAIRIS [Suspect]
     Active Substance: AMBRISENTAN
     Indication: PULMONARY ARTERIAL HYPERTENSION
     Route: 048
     Dates: start: 20091030
  11. ISOSORBIDE. [Concomitant]
     Active Substance: ISOSORBIDE
  12. NITROGLYCERIN. [Concomitant]
     Active Substance: NITROGLYCERIN
  13. HYDROXYZINE [Concomitant]
     Active Substance: HYDROXYZINE\HYDROXYZINE HYDROCHLORIDE
  14. SIMVASTATIN. [Concomitant]
     Active Substance: SIMVASTATIN
  15. TYVASO [Concomitant]
     Active Substance: TREPROSTINIL
     Indication: PULMONARY ARTERIAL HYPERTENSION
  16. PLAVIX [Concomitant]
     Active Substance: CLOPIDOGREL BISULFATE
  17. ASPIRIN. [Concomitant]
     Active Substance: ASPIRIN
  18. LANTUS [Concomitant]
     Active Substance: INSULIN GLARGINE
  19. MULTIVITAMIN [Concomitant]
     Active Substance: VITAMINS

REACTIONS (2)
  - Swelling [Unknown]
  - Anaemia [Unknown]
